FAERS Safety Report 9651141 (Version 1)
Quarter: 2013Q4

REPORT INFORMATION
  Report Type: Spontaneous
  Country: US (occurrence: US)
  Receive Date: 20131029
  Receipt Date: 20131029
  Transmission Date: 20140711
  Serious: Yes (Hospitalization, Other)
  Sender: FDA-Public Use
  Company Number: US-B.I. PHARMACEUTICALS,INC./RIDGEFIELD-2013-BI-33750BP

PATIENT
  Age: 85 Year
  Sex: Male

DRUGS (1)
  1. FLOMAX CAPSULES [Suspect]
     Indication: BENIGN PROSTATIC HYPERPLASIA
     Dosage: 0.4 MG
     Route: 048

REACTIONS (2)
  - Lung neoplasm malignant [Not Recovered/Not Resolved]
  - Foreign body [Recovered/Resolved]
